FAERS Safety Report 14141129 (Version 2)
Quarter: 2017Q4

REPORT INFORMATION
  Report Type: Spontaneous
  Country: JP (occurrence: JP)
  Receive Date: 20171030
  Receipt Date: 20171130
  Transmission Date: 20180321
  Serious: Yes (Other)
  Sender: FDA-Public Use
  Company Number: PHJP2017JP031967

PATIENT
  Sex: Male

DRUGS (2)
  1. NILOTINIB [Suspect]
     Active Substance: NILOTINIB
     Dosage: 400 MG, UNK
     Route: 065
  2. NILOTINIB [Suspect]
     Active Substance: NILOTINIB
     Indication: CHRONIC MYELOID LEUKAEMIA
     Dosage: 800 MG, UNK
     Route: 065

REACTIONS (11)
  - Vascular wall hypertrophy [Unknown]
  - Endothelial dysfunction [Unknown]
  - Glomerular vascular disorder [Unknown]
  - Blood creatinine increased [Unknown]
  - Abdominal distension [Unknown]
  - Ascites [Unknown]
  - Weight increased [Unknown]
  - Vascular injury [Unknown]
  - Hepatocellular injury [Unknown]
  - Proteinuria [Unknown]
  - Oedema peripheral [Unknown]
